FAERS Safety Report 18396315 (Version 3)
Quarter: 2020Q4

REPORT INFORMATION
  Report Type: Other
  Country: GB (occurrence: GB)
  Receive Date: 20201019
  Receipt Date: 20201030
  Transmission Date: 20210114
  Serious: Yes (Other)
  Sender: FDA-Public Use
  Company Number: GB-ROCHE-2249963

PATIENT
  Sex: Female

DRUGS (10)
  1. ROACTEMRA [Suspect]
     Active Substance: TOCILIZUMAB
     Indication: RHEUMATOID ARTHRITIS
     Route: 058
     Dates: start: 20180426
  2. LEVOTHYROXINE. [Concomitant]
     Active Substance: LEVOTHYROXINE
  3. ROACTEMRA [Suspect]
     Active Substance: TOCILIZUMAB
     Route: 058
     Dates: start: 20190523
  4. BETNOVATE [Concomitant]
     Active Substance: BETAMETHASONE
     Indication: GINGIVAL DISORDER
     Route: 048
  5. THYROXINE [Concomitant]
     Active Substance: LEVOTHYROXINE
  6. ROACTEMRA [Suspect]
     Active Substance: TOCILIZUMAB
     Route: 058
     Dates: start: 2018
  7. TRAMADOL. [Concomitant]
     Active Substance: TRAMADOL
  8. VESICARE [Concomitant]
     Active Substance: SOLIFENACIN SUCCINATE
  9. ATORVASTATIN [Concomitant]
     Active Substance: ATORVASTATIN
  10. ORAMORPH [Concomitant]
     Active Substance: MORPHINE SULFATE

REACTIONS (7)
  - Urinary tract infection [Unknown]
  - Purulence [Unknown]
  - Infection [Unknown]
  - Limb injury [Unknown]
  - Localised infection [Unknown]
  - Rheumatoid arthritis [Unknown]
  - Nail disorder [Unknown]
